FAERS Safety Report 7186011-4 (Version None)
Quarter: 2010Q4

REPORT INFORMATION
  Report Type: 
  Country: None (occurrence: None)
  Receive Date: 20101222
  Receipt Date: 20101215
  Transmission Date: 20110411
  Serious: Yes (Life-Threatening)
  Sender: FDA-Public Use
  Company Number: HR-PFIZER INC-2010172365

PATIENT
  Age: 55 Year
  Sex: Male

DRUGS (2)
  1. DEPO-MEDROL [Suspect]
     Dosage: 40 MG, SINGLE
     Route: 014
     Dates: start: 20101125, end: 20101125
  2. LIDOKAIN [Suspect]
     Indication: PERIARTHRITIS
     Dosage: 80 MG, SINGLE
     Route: 014
     Dates: start: 20101125, end: 20101125

REACTIONS (5)
  - ERYTHEMA [None]
  - HYPOTENSION [None]
  - PRURITUS [None]
  - SUFFOCATION FEELING [None]
  - TACHYCARDIA [None]
